FAERS Safety Report 24388599 (Version 1)
Quarter: 2024Q4

REPORT INFORMATION
  Report Type: Spontaneous
  Country: CA (occurrence: CA)
  Receive Date: 20241002
  Receipt Date: 20241002
  Transmission Date: 20250114
  Serious: Yes (Other)
  Sender: GLAXOSMITHKLINE
  Company Number: CA-GLAXOSMITHKLINE-CA2024GSK121263

PATIENT

DRUGS (5)
  1. BUPROPION [Suspect]
     Active Substance: BUPROPION
     Indication: Depression
     Dosage: 150 MG, QD (1 IN 1 D)
     Route: 065
  2. FENTANYL [Suspect]
     Active Substance: FENTANYL
     Indication: Pain
     Dosage: 12 MG, Q3D (1 IN 3 DAYS)
     Route: 065
  3. FENTANYL [Suspect]
     Active Substance: FENTANYL
     Dosage: 25 UG
     Route: 065
  4. GABAPENTIN [Concomitant]
     Active Substance: GABAPENTIN
     Indication: Product used for unknown indication
     Dosage: UNK
  5. BENADRYL [Concomitant]
     Active Substance: DIPHENHYDRAMINE HYDROCHLORIDE
     Indication: Product used for unknown indication
     Dosage: UNK

REACTIONS (8)
  - Respiratory depression [Unknown]
  - Cerebral disorder [Unknown]
  - Ear discomfort [Unknown]
  - Erythema [Unknown]
  - Skin irritation [Unknown]
  - Coordination abnormal [Unknown]
  - Insomnia [Unknown]
  - Pruritus [Unknown]
